FAERS Safety Report 4319177-1 (Version None)
Quarter: 2004Q1

REPORT INFORMATION
  Report Type: 
  Country: None (occurrence: None)
  Receive Date: 20040316
  Receipt Date: 20040303
  Transmission Date: 20041129
  Serious: Yes (Hospitalization)
  Sender: FDA-Public Use
  Company Number: EWC040338328

PATIENT
  Age: 46 Year
  Sex: Male
  Weight: 55 kg

DRUGS (13)
  1. GEMCITABINE HYDROCHLORIDE-IV (GEMCITABINE) [Suspect]
     Indication: BILE DUCT CANCER
     Dosage: 1250 MG/M2 OTHER
     Dates: start: 20040225
  2. SPIRONOLACTONE [Concomitant]
  3. PANCREATIN [Concomitant]
  4. MS CONTIN [Concomitant]
  5. SEVREDOL (MORPHINE SULFATE) [Concomitant]
  6. LASIX [Concomitant]
  7. MIXTARD HUMAN 70/30 [Concomitant]
  8. MAGNESIUM OXIDE [Concomitant]
  9. PANCREASE (PANCRELIPASE) [Concomitant]
  10. HYOSCINE HBR HYT [Concomitant]
  11. PYRIDOXINE [Concomitant]
  12. DOMPERIDONE [Concomitant]
  13. METOCLOPRAMIDE [Concomitant]

REACTIONS (4)
  - ABDOMINAL PAIN [None]
  - NAUSEA [None]
  - PYREXIA [None]
  - VOMITING [None]
